FAERS Safety Report 11455182 (Version 2)
Quarter: 2020Q4

REPORT INFORMATION
  Report Type: Spontaneous
  Country: GB (occurrence: GB)
  Receive Date: 20150903
  Receipt Date: 20201228
  Transmission Date: 20210113
  Serious: Yes (Hospitalization, Other)
  Sender: FDA-Public Use
  Company Number: PHHY2015GB101955

PATIENT
  Age: 56 Year
  Sex: Female

DRUGS (5)
  1. WARFARIN [Concomitant]
     Active Substance: WARFARIN
     Indication: ATRIAL FIBRILLATION
     Route: 065
     Dates: start: 201404, end: 201409
  2. PREDNISOLONE. [Suspect]
     Active Substance: PREDNISOLONE
     Indication: IMMUNOSUPPRESSANT DRUG THERAPY
     Dosage: 60 MG, QD
     Route: 048
     Dates: start: 2007, end: 2014
  3. PREDNISOLONE. [Suspect]
     Active Substance: PREDNISOLONE
     Dosage: 5 MG, QD
     Route: 048
     Dates: start: 2014
  4. AZATHIOPRINE. [Concomitant]
     Active Substance: AZATHIOPRINE
     Indication: PRODUCT USED FOR UNKNOWN INDICATION
     Dosage: UNK
     Route: 065
  5. PREDNISOLONE. [Suspect]
     Active Substance: PREDNISOLONE
     Indication: OPTIC NEURITIS
     Dosage: 10 MG, QD
     Route: 048

REACTIONS (11)
  - Diabetes mellitus [Unknown]
  - Type 1 diabetes mellitus [Unknown]
  - Skin plaque [Recovering/Resolving]
  - Glomerulosclerosis [Unknown]
  - Hyperphosphataemia [Recovering/Resolving]
  - Skin lesion [Recovering/Resolving]
  - Calciphylaxis [Recovering/Resolving]
  - Skin necrosis [Recovering/Resolving]
  - Obesity [Unknown]
  - Pain [Recovering/Resolving]
  - Skin ulcer [Recovering/Resolving]

NARRATIVE: CASE EVENT DATE: 2014
